FAERS Safety Report 13359041 (Version 1)
Quarter: 2017Q1

REPORT INFORMATION
  Report Type: Report from Study
  Country: IT (occurrence: IT)
  Receive Date: 20170322
  Receipt Date: 20170322
  Transmission Date: 20170429
  Serious: Yes (Death, Other)
  Sender: FDA-Public Use
  Company Number: IT-PFIZER INC-2017120553

PATIENT

DRUGS (4)
  1. CISPLATIN. [Suspect]
     Active Substance: CISPLATIN
     Indication: GASTRIC CANCER
     Dosage: 40 MG/M2, CYCLIC (GIVEN INTRAVENOUSLY AS A 30-MINUTE INFUSION ON DAYS 1 AND 5)
     Route: 042
  2. LEVOLEUCOVORIN CALCIUM. [Suspect]
     Active Substance: LEVOLEUCOVORIN CALCIUM
     Indication: GASTRIC CANCER
     Dosage: 100 MG/M2, CYCLIC (ON DAYS 1-4)
     Route: 040
  3. FLUOROURACIL. [Suspect]
     Active Substance: FLUOROURACIL
     Indication: GASTRIC CANCER
     Dosage: 300 MG/M2, CYCLIC (ON DAYS 1-4)
     Route: 040
  4. EPIRUBICIN HCL [Suspect]
     Active Substance: EPIRUBICIN HYDROCHLORIDE
     Indication: GASTRIC CANCER
     Dosage: 30 MG/M2, CYCLIC (ON DAYS 1 AND 5)
     Route: 040

REACTIONS (3)
  - Cardiovascular disorder [Fatal]
  - Electrolyte imbalance [Fatal]
  - Vomiting [Unknown]
